FAERS Safety Report 8492406-9 (Version None)
Quarter: 2012Q3

REPORT INFORMATION
  Report Type: 
  Country: None (occurrence: None)
  Receive Date: 20120706
  Receipt Date: 20120626
  Transmission Date: 20120928
  Serious: Yes (Other)
  Sender: FDA-Public Use
  Company Number: JP-VERTEX PHARMACEUTICALS INC.-AE-2012-009814

PATIENT
  Age: 64 Year
  Sex: Male

DRUGS (9)
  1. REBETOL [Concomitant]
     Route: 048
     Dates: start: 20120508
  2. PEG-INTRON [Concomitant]
     Indication: HEPATITIS C
     Route: 058
     Dates: start: 20120420, end: 20120423
  3. TELAVIC (TELAPREVIR) [Suspect]
     Route: 048
     Dates: start: 20120508
  4. RESTAMIN [Concomitant]
     Route: 061
     Dates: start: 20120423
  5. LOXONIN [Concomitant]
     Route: 048
     Dates: start: 20120515
  6. SELBEX [Concomitant]
     Route: 048
     Dates: start: 20120515
  7. REBETOL [Concomitant]
     Indication: HEPATITIS C
     Route: 048
     Dates: start: 20120420, end: 20120423
  8. TELAVIC (TELAPREVIR) [Suspect]
     Indication: HEPATITIS C
     Route: 048
     Dates: start: 20120420, end: 20120423
  9. PEG-INTRON [Concomitant]
     Route: 058
     Dates: start: 20120508

REACTIONS (1)
  - RENAL IMPAIRMENT [None]
